FAERS Safety Report 6772269-X (Version None)
Quarter: 2010Q2

REPORT INFORMATION
  Report Type: 
  Country: None (occurrence: None)
  Receive Date: 20100616
  Receipt Date: 20090716
  Transmission Date: 20101027
  Serious: No
  Sender: FDA-Public Use
  Company Number: US-ASTRAZENECA-2009UW19932

PATIENT
  Sex: Female
  Weight: 92.1 kg

DRUGS (12)
  1. PULMICORT RESPULES [Suspect]
     Route: 055
  2. MEVACOR [Concomitant]
  3. LASIX [Concomitant]
  4. OMEPRAZOLE [Concomitant]
  5. LEVOTHROID [Concomitant]
  6. INSULIN [Concomitant]
  7. METFORMIN [Concomitant]
  8. LOPRESSOR [Concomitant]
  9. ISOSORBIDE [Concomitant]
  10. K TABLETS [Concomitant]
  11. ASPIRIN [Concomitant]
  12. SEROQUEL [Concomitant]

REACTIONS (2)
  - CHEST PAIN [None]
  - PRURITUS [None]
